FAERS Safety Report 8130528 (Version 2)
Quarter: 2012Q4

REPORT INFORMATION
  Report Type: Report from Study
  Country: DE (occurrence: DE)
  Receive Date: 20110912
  Receipt Date: 20121121
  Transmission Date: 20130627
  Serious: Yes (Death)
  Sender: FDA-Public Use
  Company Number: DE-ACTELION-A-CH2011-53612

PATIENT
  Age: 73 Year
  Sex: Male
  Weight: 60 kg

DRUGS (1)
  1. TRACLEER [Suspect]
     Indication: DIGITAL ULCER
     Dosage: 62.5 mg, bid
     Route: 048
     Dates: start: 20100716, end: 201011

REACTIONS (1)
  - Multi-organ failure [Fatal]
